FAERS Safety Report 21345743 (Version 2)
Quarter: 2022Q3

REPORT INFORMATION
  Report Type: Report from Study
  Country: US (occurrence: US)
  Receive Date: 20220916
  Receipt Date: 20220919
  Transmission Date: 20221027
  Serious: No
  Sender: FDA-Public Use
  Company Number: US-NOVARTISTESTPH-NVSC2022US210019

PATIENT
  Sex: Male

DRUGS (1)
  1. ENTRESTO [Suspect]
     Active Substance: SACUBITRIL\VALSARTAN
     Indication: Cardiac failure
     Dosage: 97 MG, BID, (97.103), (DISPERSIBLE)
     Route: 048
     Dates: start: 2015

REACTIONS (3)
  - Weight decreased [Unknown]
  - Dizziness [Unknown]
  - Hypotension [Unknown]
